FAERS Safety Report 13446120 (Version 4)
Quarter: 2025Q4

REPORT INFORMATION
  Report Type: Spontaneous
  Country: US (occurrence: US)
  Receive Date: 20170417
  Receipt Date: 20251125
  Transmission Date: 20260117
  Serious: Yes (Life-Threatening, Hospitalization, Other)
  Sender: AUROBINDO
  Company Number: None

PATIENT
  Age: 46 Year
  Sex: Male

DRUGS (9)
  1. CLOZAPINE [Suspect]
     Active Substance: CLOZAPINE
     Indication: Schizoaffective disorder
     Dosage: 150 MG, UNK
  2. CLOZAPINE [Suspect]
     Active Substance: CLOZAPINE
     Dosage: UNK, TITRATED TO 150 MG/D
  3. CLOZAPINE [Suspect]
     Active Substance: CLOZAPINE
     Dosage: 25 MG, UNK
  4. CLOZAPINE [Suspect]
     Active Substance: CLOZAPINE
     Dosage: 100 MILLIGRAM, ONCE A DAY (HS)
     Dates: start: 20071031
  5. CLOZAPINE [Suspect]
     Active Substance: CLOZAPINE
     Dosage: 50 MILLIGRAM, ONCE A DAY (Q AM)
     Dates: start: 20071031
  6. DIVALPROEX SODIUM [Suspect]
     Active Substance: DIVALPROEX SODIUM
     Indication: Product used for unknown indication
     Dosage: 1500 MG, ONCE A DAY
  7. LITHIUM [Suspect]
     Active Substance: LITHIUM
     Indication: Product used for unknown indication
     Dosage: 600 MG, TWO TIMES A DAY
  8. RISPERIDONE    fghtyxuj yhuj [Concomitant]
     Indication: Product used for unknown indication
     Dosage: UNK
     Route: 065
  9. CEFOXITIN [Concomitant]
     Active Substance: CEFOXITIN SODIUM
     Indication: Product used for unknown indication
     Dosage: UNK

REACTIONS (3)
  - Multiple organ dysfunction syndrome [Unknown]
  - Tubulointerstitial nephritis [Recovered/Resolved]
  - Pancreatitis [Recovered/Resolved]

NARRATIVE: CASE EVENT DATE: 20071101
